FAERS Safety Report 9467531 (Version 1)
Quarter: 2013Q3

REPORT INFORMATION
  Report Type: Spontaneous
  Country: US (occurrence: None)
  Receive Date: 20130819
  Receipt Date: 20130819
  Transmission Date: 20140515
  Serious: Yes (Hospitalization)
  Sender: FDA-Public Use
  Company Number: None

PATIENT
  Sex: Male

DRUGS (2)
  1. DEPAKOTE [Suspect]
     Indication: EPILEPSY
     Dosage: FALL 2010 - WINTER 2011
     Dates: start: 2010, end: 2011
  2. DILANTIN [Suspect]
     Indication: EPILEPSY
     Dosage: FALL 2011
     Dates: start: 2011

REACTIONS (5)
  - Petit mal epilepsy [None]
  - Complex partial seizures [None]
  - Pneumonia [None]
  - Hypersensitivity [None]
  - Condition aggravated [None]
